FAERS Safety Report 7791091-9 (Version None)
Quarter: 2011Q4

REPORT INFORMATION
  Report Type: 
  Country: None (occurrence: None)
  Receive Date: 20111003
  Receipt Date: 20110928
  Transmission Date: 20120403
  Serious: No
  Sender: FDA-Public Use
  Company Number: US-BIOGENIDEC-2011BI017075

PATIENT
  Age: 33 Year
  Sex: Female

DRUGS (2)
  1. BENADRYL [Concomitant]
     Indication: PREMEDICATION
  2. TYSABRI [Suspect]
     Indication: MULTIPLE SCLEROSIS
     Route: 042
     Dates: start: 20110124

REACTIONS (5)
  - HYPERSENSITIVITY [None]
  - HEADACHE [None]
  - PAIN [None]
  - FATIGUE [None]
  - SLUGGISHNESS [None]
